FAERS Safety Report 12384609 (Version 1)
Quarter: 2016Q2

REPORT INFORMATION
  Report Type: Spontaneous
  Country: US (occurrence: US)
  Receive Date: 20160519
  Receipt Date: 20160519
  Transmission Date: 20160815
  Serious: No
  Sender: FDA-Public Use
  Company Number: US-PFIZER INC-2016247703

PATIENT
  Age: 53 Year
  Sex: Female
  Weight: 75.28 kg

DRUGS (1)
  1. IBRANCE [Suspect]
     Active Substance: PALBOCICLIB
     Indication: BREAST CANCER
     Dosage: 125 MG, DAILY
     Route: 048
     Dates: start: 20160313

REACTIONS (3)
  - Dizziness [Unknown]
  - Asthenia [Unknown]
  - Tremor [Unknown]

NARRATIVE: CASE EVENT DATE: 20160505
